FAERS Safety Report 8914955 (Version 2)
Quarter: 2012Q4

REPORT INFORMATION
  Report Type: 
  Country: US (occurrence: US)
  Receive Date: 20121116
  Receipt Date: 20121203
  Transmission Date: 20130627
  Serious: Yes (Other)
  Sender: FDA-Public Use
  Company Number: US-JHP PHARMACEUTICALS, LLC-JHP201200520

PATIENT
  Age: 11 Year
  Sex: Female

DRUGS (2)
  1. TIGAN [Suspect]
     Indication: NAUSEA
     Dosage: 100 mg, single
     Route: 030
     Dates: start: 201211, end: 201211
  2. TIGAN [Suspect]
     Indication: VOMITING

REACTIONS (3)
  - Fatigue [Recovered/Resolved]
  - Dizziness [Recovered/Resolved]
  - Off label use [Recovered/Resolved]
